FAERS Safety Report 25557268 (Version 3)
Quarter: 2025Q3

REPORT INFORMATION
  Report Type: Spontaneous
  Country: EU (occurrence: EU)
  Receive Date: 20250715
  Receipt Date: 20250804
  Transmission Date: 20251021
  Serious: Yes (Other)
  Sender: ALEXION PHARMACEUTICALS
  Company Number: EU-002147023-NVSC2025FR106875

PATIENT
  Age: 49 Year
  Sex: Female

DRUGS (12)
  1. FASLODEX [Suspect]
     Active Substance: FULVESTRANT
     Indication: HER2 negative breast cancer
     Route: 065
  2. FASLODEX [Suspect]
     Active Substance: FULVESTRANT
  3. NOLVADEX [Suspect]
     Active Substance: TAMOXIFEN CITRATE
     Indication: Product used for unknown indication
     Route: 065
  4. EVEROLIMUS [Suspect]
     Active Substance: EVEROLIMUS
     Indication: HER2 negative breast cancer
     Route: 065
  5. EXEMESTANE [Suspect]
     Active Substance: EXEMESTANE
     Indication: HER2 negative breast cancer
     Route: 065
  6. PACLITAXEL [Suspect]
     Active Substance: PACLITAXEL
     Indication: HER2 negative breast cancer
     Route: 065
  7. HALAVEN [Suspect]
     Active Substance: ERIBULIN MESYLATE
     Indication: HER2 negative breast cancer
     Route: 065
  8. PALBOCICLIB [Suspect]
     Active Substance: PALBOCICLIB
     Indication: HER2 negative breast cancer
     Route: 065
  9. CAPECITABINE [Concomitant]
     Active Substance: CAPECITABINE
     Route: 065
  10. DOXORUBICIN [Concomitant]
     Active Substance: DOXORUBICIN
     Indication: Product used for unknown indication
     Route: 065
  11. ABEMACICLIB [Concomitant]
     Active Substance: ABEMACICLIB
     Indication: Product used for unknown indication
     Route: 065
  12. GEMCITABINE [Suspect]
     Active Substance: GEMCITABINE

REACTIONS (5)
  - Metastases to liver [Unknown]
  - Drug ineffective [Unknown]
  - Type IV hypersensitivity reaction [Unknown]
  - Palmar-plantar erythrodysaesthesia syndrome [Unknown]
  - Cross sensitivity reaction [Unknown]
